FAERS Safety Report 4888524-4 (Version None)
Quarter: 2005Q4

REPORT INFORMATION
  Report Type: 
  Country: None (occurrence: None)
  Receive Date: 20051215
  Receipt Date: 20050120
  Transmission Date: 20060501
  Serious: Yes (Hospitalization, Other)
  Sender: FDA-Public Use
  Company Number: 2004121674

PATIENT
  Age: 65 Year
  Sex: Female
  Weight: 58.9676 kg

DRUGS (8)
  1. BEXTRA [Suspect]
     Indication: ILL-DEFINED DISORDER
     Dosage: (10 MG)
  2. NITROGLYCERIN [Concomitant]
  3. HYDROCODONE BITARTRATE [Concomitant]
  4. SOMA [Concomitant]
  5. ALBUTEROL [Concomitant]
  6. SIMDAX (LEVOSIMENDAN) [Concomitant]
  7. ACCUPRIL [Concomitant]
  8. VERAPAMIL [Concomitant]

REACTIONS (3)
  - CARDIAC FAILURE CONGESTIVE [None]
  - COUGH [None]
  - PNEUMONIA [None]
